FAERS Safety Report 14603150 (Version 1)
Quarter: 2018Q1

REPORT INFORMATION
  Report Type: Spontaneous
  Country: ES (occurrence: ES)
  Receive Date: 20180306
  Receipt Date: 20180306
  Transmission Date: 20180509
  Serious: Yes (Other)
  Sender: FDA-Public Use
  Company Number: ES-ABBVIE-18P-144-2270870-00

PATIENT
  Age: 3 Year
  Sex: Female

DRUGS (4)
  1. DEPAKINE [Suspect]
     Active Substance: VALPROATE SODIUM
     Indication: FEBRILE CONVULSION
     Dosage: EVERY 12 HOURS
     Route: 065
  2. DEPAKINE [Suspect]
     Active Substance: VALPROATE SODIUM
     Dosage: EVERY 12 HOURS
     Route: 065
  3. DEPAKINE [Suspect]
     Active Substance: VALPROATE SODIUM
     Dosage: EVERY 12 HOURS
     Route: 065
  4. DEPAKINE [Suspect]
     Active Substance: VALPROATE SODIUM
     Dosage: EVERY 12 HOURS
     Route: 065

REACTIONS (3)
  - Learning disorder [Not Recovered/Not Resolved]
  - Pyrexia [Unknown]
  - Agitation [Unknown]
